FAERS Safety Report 5151489-4 (Version None)
Quarter: 2006Q4

REPORT INFORMATION
  Report Type: 
  Country: None (occurrence: None)
  Receive Date: 20061114
  Receipt Date: 20061114
  Transmission Date: 20070319
  Serious: Yes (Other)
  Sender: FDA-Public Use
  Company Number: None

PATIENT
  Sex: Female
  Weight: 68.0396 kg

DRUGS (2)
  1. EQUATE  EXTRA STRENGTH PAIN RELIEVER  500 MG EACH  - PACKAGED BY PERRI [Suspect]
     Indication: HEADACHE
     Dates: start: 20060101, end: 20061108
  2. EQUATE  EXTRA STRENGTH PAIN RELIEVER  500 MG EACH  - PACKAGED BY PERRI [Suspect]
     Indication: PAIN
     Dates: start: 20060101, end: 20061108

REACTIONS (5)
  - ABDOMINAL PAIN UPPER [None]
  - DIARRHOEA [None]
  - HEADACHE [None]
  - MOUTH HAEMORRHAGE [None]
  - STRESS [None]
